FAERS Safety Report 21815991 (Version 2)
Quarter: 2023Q1

REPORT INFORMATION
  Report Type: Spontaneous
  Country: JP (occurrence: JP)
  Receive Date: 20230104
  Receipt Date: 20230228
  Transmission Date: 20230418
  Serious: Yes (Death, Life-Threatening, Hospitalization, Other)
  Sender: FDA-Public Use
  Company Number: JP-ASTELLAS-2022JP006654

PATIENT
  Age: 73 Year
  Sex: Male

DRUGS (3)
  1. PADCEV [Suspect]
     Active Substance: ENFORTUMAB VEDOTIN-EJFV
     Indication: Transitional cell carcinoma
     Dosage: 1.25 MG/KG, 3 TIMES/4 WEEKS, ADMINISTRATION FOR THREE WEEKS AND INTERRUPTION FOR A WEEK
     Route: 041
     Dates: start: 20220414
  2. PADCEV [Suspect]
     Active Substance: ENFORTUMAB VEDOTIN-EJFV
     Dosage: 1.25 MG/KG, ADMINISTRATION FOR THREE WEEKS AND INTERRUPTION FOR A WEEK
     Route: 041
  3. INSULIN NOS [Concomitant]
     Active Substance: INSULIN NOS
     Indication: Hyperglycaemia
     Dosage: UNK UNK, UNKNOWN FREQ.
     Route: 065

REACTIONS (4)
  - Liver abscess [Fatal]
  - Hyperglycaemia [Not Recovered/Not Resolved]
  - Hypercalcaemia [Unknown]
  - Resorption bone increased [Unknown]
